FAERS Safety Report 8182262-0 (Version None)
Quarter: 2012Q1

REPORT INFORMATION
  Report Type: 
  Country: None (occurrence: None)
  Receive Date: 20120302
  Receipt Date: 20120227
  Transmission Date: 20120608
  Serious: Yes (Death)
  Sender: FDA-Public Use
  Company Number: PHHY2011JP47223

PATIENT
  Sex: Male

DRUGS (4)
  1. CALBLOCK [Concomitant]
     Dosage: 16 MG, UNK
     Dates: end: 20100323
  2. DIOVAN [Suspect]
     Indication: HYPERTENSION
     Dosage: 40 MG, QD
     Route: 048
     Dates: start: 20090125
  3. LUNETORON [Concomitant]
     Dosage: 1 MG, UNK
     Route: 048
     Dates: start: 20080923, end: 20100323
  4. CALBLOCK [Concomitant]
     Dosage: 8 MG, UNK
     Dates: start: 20081123

REACTIONS (1)
  - DEATH [None]
